FAERS Safety Report 21338353 (Version 1)
Quarter: 2022Q3

REPORT INFORMATION
  Report Type: Spontaneous
  Country: DE (occurrence: DE)
  Receive Date: 20220915
  Receipt Date: 20220915
  Transmission Date: 20221027
  Serious: Yes (Hospitalization)
  Sender: FDA-Public Use
  Company Number: None

PATIENT
  Age: 67 Year
  Sex: Male
  Weight: 80 kg

DRUGS (17)
  1. PEMETREXED [Suspect]
     Active Substance: PEMETREXED
     Dosage: 75, ACCORDING TO SCHEME
  2. ZOLEDRONIC ACID [Suspect]
     Active Substance: ZOLEDRONIC ACID
     Dosage: ACCORDING TO SCHEME
  3. CISPLATIN [Suspect]
     Active Substance: CISPLATIN
     Dosage: 75, ACCORDING TO SCHEME
  4. DEXAMETHASON ACIS [DEXAMETHASONE] [Concomitant]
     Route: 048
  5. Glycopyrroniumbromid/Indacaterol [Concomitant]
     Dosage: 1 DF, 1X/DAY
     Route: 055
  6. METAMIZOL [Concomitant]
     Active Substance: METAMIZOLE SODIUM
     Dosage: 750 MG, AS NEEDED
     Route: 048
  7. EISEN [Concomitant]
     Dosage: 50 MG, 2X/DAY
     Route: 048
  8. Calciumcarbonat/Calciumgluconat-Calciumlactat [Concomitant]
     Dosage: 300|2945.15 MG 1X/DAY
     Route: 048
  9. PANTOPRAZOLE [Concomitant]
     Active Substance: PANTOPRAZOLE
     Dosage: 40 MG, 2X/DAY
     Route: 048
  10. FOLIC ACID [Concomitant]
     Active Substance: FOLIC ACID
     Dosage: 13 DF, 1X/DAY
     Route: 048
  11. TAMSULOSIN [Concomitant]
     Active Substance: TAMSULOSIN
     Dosage: 0.4 MG, 1X/DAY
     Route: 048
  12. ENOXAPARIN [Concomitant]
     Active Substance: ENOXAPARIN
     Dosage: 80 MG, 2X/DAY
     Route: 058
  13. METOCLOPRAMIDE [Concomitant]
     Active Substance: METOCLOPRAMIDE
     Dosage: 10 MG, 3X/DAY
     Route: 048
  14. SODIUM PICOSULFATE [Concomitant]
     Active Substance: SODIUM PICOSULFATE
     Dosage: 5 MG, 1X/DAY
     Route: 048
  15. CYANOCOBALAMIN [Concomitant]
     Active Substance: CYANOCOBALAMIN
     Dosage: 1 MG, 1X/DAY
     Route: 048
  16. CHOLECALCIFEROL [Concomitant]
     Active Substance: CHOLECALCIFEROL
     Dosage: 1000 IU, 2X/DAY
     Route: 048
  17. LACTULOSE [Concomitant]
     Active Substance: LACTULOSE
     Dosage: 6.670 G, 1X/DAY
     Route: 048

REACTIONS (7)
  - Muscular weakness [Unknown]
  - Weight decreased [Unknown]
  - Anaemia [Unknown]
  - Constipation [Unknown]
  - Nausea [Unknown]
  - Dyspnoea [Unknown]
  - General physical health deterioration [Unknown]
